FAERS Safety Report 7885056-6 (Version None)
Quarter: 2011Q4

REPORT INFORMATION
  Report Type: 
  Country: None (occurrence: None)
  Receive Date: 20111102
  Receipt Date: 20100625
  Transmission Date: 20120403
  Serious: No
  Sender: FDA-Public Use
  Company Number: US-BAYER-201026423NA

PATIENT

DRUGS (1)
  1. AVELOX [Suspect]
     Dosage: 400 MG, UNK
     Dates: start: 20100625

REACTIONS (1)
  - HYPERSENSITIVITY [None]
